FAERS Safety Report 24531640 (Version 1)
Quarter: 2024Q4

REPORT INFORMATION
  Report Type: Report from Study
  Country: CA (occurrence: CA)
  Receive Date: 20241022
  Receipt Date: 20241022
  Transmission Date: 20250115
  Serious: No
  Sender: ROCHE
  Company Number: CA-ROCHE-2269335

PATIENT
  Sex: Female

DRUGS (2)
  1. PULMOZYME [Suspect]
     Active Substance: DORNASE ALFA
     Indication: Cystic fibrosis
     Route: 065
     Dates: start: 20160704, end: 2018
  2. PULMOZYME [Suspect]
     Active Substance: DORNASE ALFA
     Route: 065
     Dates: start: 201909

REACTIONS (2)
  - Drug ineffective [Unknown]
  - No adverse event [Unknown]
